FAERS Safety Report 4716676-5 (Version None)
Quarter: 2005Q3

REPORT INFORMATION
  Report Type: 
  Country: None (occurrence: None)
  Receive Date: 20050719
  Receipt Date: 20050712
  Transmission Date: 20060218
  Serious: Yes (Hospitalization)
  Sender: FDA-Public Use
  Company Number: US-BRISTOL-MYERS SQUIBB COMPANY-13034327

PATIENT
  Age: 67 Year
  Sex: Male

DRUGS (9)
  1. GLUCOPHAGE [Suspect]
  2. CARBOPLATIN [Concomitant]
  3. RADIATION THERAPY [Concomitant]
     Dosage: DOSAGE FORM = FRACTIONS
     Dates: start: 20050501, end: 20050614
  4. LISINOPRIL [Concomitant]
  5. SALMETEROL XINAFOATE+FLUTICASONE PROP [Concomitant]
  6. ASPIRIN [Concomitant]
  7. METOPROLOL SUCCINATE [Concomitant]
  8. FILGRASTIM [Concomitant]
  9. EPOETIN ALFA [Concomitant]

REACTIONS (4)
  - DYSPNOEA [None]
  - PNEUMONITIS [None]
  - RENAL FAILURE ACUTE [None]
  - THROMBOCYTOPENIA [None]
